FAERS Safety Report 15316639 (Version 3)
Quarter: 2019Q1

REPORT INFORMATION
  Report Type: Spontaneous
  Country: JP (occurrence: JP)
  Receive Date: 20180824
  Receipt Date: 20190128
  Transmission Date: 20190417
  Serious: Yes (Other)
  Sender: FDA-Public Use
  Company Number: JP-PFIZER INC-2018335060

PATIENT
  Age: 44 Year
  Sex: Female
  Weight: 50 kg

DRUGS (10)
  1. HALCION [Suspect]
     Active Substance: TRIAZOLAM
     Dosage: UNK
  2. HALCION [Suspect]
     Active Substance: TRIAZOLAM
     Dosage: 1 DF, 1X/DAY
     Route: 048
     Dates: start: 20180716, end: 20180716
  3. HALCION [Suspect]
     Active Substance: TRIAZOLAM
     Dosage: 1 DF, 1X/DAY
     Route: 048
     Dates: start: 20180713, end: 20180713
  4. BRUFEN [Suspect]
     Active Substance: IBUPROFEN
     Indication: UPPER RESPIRATORY TRACT INFLAMMATION
     Dosage: 1 TABLET, 3X/DAY
     Route: 048
     Dates: start: 20180712, end: 20180716
  5. CHLOPHEDRIN [Suspect]
     Active Substance: CHLORPHENIRAMINE MALEATE\DIHYDROCODEINE PHOSPHATE\METHYLEPHEDRINE HYDROCHLORIDE, DL-
     Indication: UPPER RESPIRATORY TRACT INFLAMMATION
     Dosage: 2 TABLETS, 3X/DAY
     Route: 048
     Dates: start: 20180712, end: 20180716
  6. HALCION [Suspect]
     Active Substance: TRIAZOLAM
     Indication: INSOMNIA
     Dosage: 1 TABLET, 1X/DAY
     Route: 048
     Dates: start: 20180712, end: 20180712
  7. COCARL [Suspect]
     Active Substance: ACETAMINOPHEN
     Indication: UPPER RESPIRATORY TRACT INFLAMMATION
     Dosage: 1 DF, AS NEEDED
     Route: 048
     Dates: start: 20180712, end: 20180716
  8. MEIACT MS [Suspect]
     Active Substance: CEFDITOREN PIVOXIL
     Indication: UPPER RESPIRATORY TRACT INFLAMMATION
     Dosage: 1 TABLET, 3X/DAY
     Route: 048
     Dates: start: 20180712, end: 20180716
  9. MUCOSOLVAN [Suspect]
     Active Substance: AMBROXOL HYDROCHLORIDE
     Indication: UPPER RESPIRATORY TRACT INFLAMMATION
     Dosage: 1 TABLET, 1X/DAY
     Route: 048
     Dates: start: 20180712, end: 20180716
  10. TULOBUTEROL SAWAI [Suspect]
     Active Substance: TULOBUTEROL
     Indication: UPPER RESPIRATORY TRACT INFLAMMATION
     Dosage: 2 MG, 1X/DAY
     Route: 062
     Dates: start: 20180712, end: 20180716

REACTIONS (2)
  - Paralysis [Recovered/Resolved]
  - Movement disorder [Recovered/Resolved]

NARRATIVE: CASE EVENT DATE: 20180717
